FAERS Safety Report 12455184 (Version 1)
Quarter: 2016Q2

REPORT INFORMATION
  Report Type: Report from Study
  Country: BR (occurrence: BR)
  Receive Date: 20160610
  Receipt Date: 20160610
  Transmission Date: 20160815
  Serious: Yes (Life-Threatening, Hospitalization, Other)
  Sender: FDA-Public Use
  Company Number: BR-BIOGEN-2014BI036090

PATIENT
  Age: 66 Year
  Sex: Female

DRUGS (19)
  1. AVONEX [Suspect]
     Active Substance: INTERFERON BETA-1A
     Route: 030
     Dates: start: 201408, end: 201409
  2. DIPYRONE [Concomitant]
     Active Substance: DIPYRONE
     Indication: PYREXIA
  3. ADDERA D3 [Concomitant]
     Active Substance: CHOLECALCIFEROL
     Indication: GASTROINTESTINAL DISORDER
     Route: 065
  4. RIVOTRIL [Concomitant]
     Active Substance: CLONAZEPAM
     Indication: INSOMNIA
     Route: 065
  5. DIPYRONE [Concomitant]
     Active Substance: DIPYRONE
     Indication: PREMEDICATION
     Route: 042
  6. PROLIV (LACTOBACILLUS ACIDOPHILUS) [Concomitant]
     Indication: GASTROINTESTINAL DISORDER
     Route: 065
  7. BUSONID [Concomitant]
     Active Substance: BUDESONIDE
     Indication: RESPIRATORY MUSCLE WEAKNESS
     Route: 065
  8. BUSONID [Concomitant]
     Active Substance: BUDESONIDE
     Indication: ASTHMA
  9. NITROFURANTOIN. [Concomitant]
     Active Substance: NITROFURANTOIN
     Indication: PROPHYLAXIS
     Route: 065
     Dates: start: 20140510, end: 20140710
  10. AVONEX [Suspect]
     Active Substance: INTERFERON BETA-1A
     Indication: MULTIPLE SCLEROSIS
     Route: 030
     Dates: start: 20140314
  11. AVONEX [Suspect]
     Active Substance: INTERFERON BETA-1A
     Route: 030
     Dates: start: 20140407
  12. DIPYRONE [Concomitant]
     Active Substance: DIPYRONE
     Indication: TACHYCARDIA
  13. TYLENOL [Concomitant]
     Active Substance: ACETAMINOPHEN
     Indication: PREMEDICATION
     Route: 065
  14. ESOMEPRAZOLE [Concomitant]
     Active Substance: ESOMEPRAZOLE
     Indication: ASTHMA
     Route: 065
  15. OMEPRAZOLE. [Concomitant]
     Active Substance: OMEPRAZOLE
     Indication: GASTROINTESTINAL DISORDER
     Route: 065
  16. RIVOTRIL [Concomitant]
     Active Substance: CLONAZEPAM
     Indication: GASTROINTESTINAL DISORDER
  17. DIPYRONE [Concomitant]
     Active Substance: DIPYRONE
     Indication: MALAISE
  18. DIPYRONE [Concomitant]
     Active Substance: DIPYRONE
     Indication: MALAISE
  19. MACRODANTIN [Concomitant]
     Active Substance: NITROFURANTOIN
     Indication: PROPHYLAXIS
     Route: 065
     Dates: start: 20140510, end: 20140710

REACTIONS (36)
  - Urinary tract infection [Recovered/Resolved]
  - Gastroenteritis [Not Recovered/Not Resolved]
  - Fluid intake reduced [Unknown]
  - Balance disorder [Unknown]
  - Vertigo [Unknown]
  - Diabetes mellitus [Unknown]
  - Muscle spasms [Unknown]
  - Decreased appetite [Unknown]
  - Multiple sclerosis [Not Recovered/Not Resolved]
  - Muscular weakness [Unknown]
  - Arthralgia [Unknown]
  - Hypersensitivity [Unknown]
  - Neurogenic bladder [Recovered/Resolved]
  - Gait disturbance [Unknown]
  - Nasopharyngitis [Unknown]
  - General symptom [Unknown]
  - Joint stiffness [Unknown]
  - Pyrexia [Recovered/Resolved]
  - Coordination abnormal [Unknown]
  - Viral sinusitis [Unknown]
  - Gastrooesophageal reflux disease [Unknown]
  - Musculoskeletal pain [Unknown]
  - Influenza like illness [Unknown]
  - Asthenia [Unknown]
  - Fatigue [Recovered/Resolved]
  - Neuromyelitis optica spectrum disorder [Unknown]
  - Lung disorder [Unknown]
  - Dyspnoea [Unknown]
  - Malaise [Recovered/Resolved]
  - Pulmonary fibrosis [Unknown]
  - Metamorphopsia [Unknown]
  - Diarrhoea [Unknown]
  - Tachycardia [Recovered/Resolved]
  - Pain [Recovered/Resolved]
  - Hyperhidrosis [Not Recovered/Not Resolved]
  - Multiple sclerosis relapse [Unknown]

NARRATIVE: CASE EVENT DATE: 2014
